FAERS Safety Report 21039615 (Version 1)
Quarter: 2022Q3

REPORT INFORMATION
  Report Type: Spontaneous
  Country: CN (occurrence: CN)
  Receive Date: 20220704
  Receipt Date: 20220704
  Transmission Date: 20221026
  Serious: Yes (Death, Hospitalization, Other)
  Sender: FDA-Public Use
  Company Number: CN-SLATE RUN PHARMACEUTICALS-22CN001172

PATIENT

DRUGS (19)
  1. POTASSIUM CHLORIDE [Suspect]
     Active Substance: POTASSIUM CHLORIDE
     Indication: Product used for unknown indication
     Dosage: 0.5 GRAM, BID
  2. REMODULIN [Suspect]
     Active Substance: TREPROSTINIL
     Indication: Dyspnoea exertional
     Dosage: WEANED
     Route: 042
  3. REMODULIN [Suspect]
     Active Substance: TREPROSTINIL
     Indication: Dyspnoea at rest
     Dosage: 2.0 NG/KG.MIN
     Route: 042
  4. REMODULIN [Suspect]
     Active Substance: TREPROSTINIL
     Dosage: 1.0-2.0 NG/KG.MIN
     Route: 042
  5. REMODULIN [Suspect]
     Active Substance: TREPROSTINIL
     Dosage: 1.0-1.2 NG/KG.MIN
     Route: 042
  6. REMODULIN [Suspect]
     Active Substance: TREPROSTINIL
     Dosage: 0.45-0.9 NG/KG.MIN
     Route: 042
  7. FUROSEMIDE [Concomitant]
     Active Substance: FUROSEMIDE
     Indication: Product used for unknown indication
     Dosage: 20 MILLIGRAM, QD
  8. PREDNISONE [Concomitant]
     Active Substance: PREDNISONE
     Indication: Systemic lupus erythematosus
     Dosage: 50 MILLIGRAM
  9. PREDNISONE [Concomitant]
     Active Substance: PREDNISONE
     Dosage: 10 MILLIGRAM
  10. HYDROXYCHLOROQUINE [Concomitant]
     Active Substance: HYDROXYCHLOROQUINE
     Indication: Systemic lupus erythematosus
     Dosage: 200 MILLIGRAM
  11. CYCLOSPORINE [Concomitant]
     Active Substance: CYCLOSPORINE
     Indication: Product used for unknown indication
     Dosage: 100 MILLIGRAM
  12. AMBRISENTAN [Concomitant]
     Active Substance: AMBRISENTAN
     Indication: Pulmonary arterial hypertension
     Dosage: 10 MILLIGRAM
  13. AMBRISENTAN [Concomitant]
     Active Substance: AMBRISENTAN
     Dosage: 10 MILLIGRAM
  14. SILDENAFIL [Concomitant]
     Active Substance: SILDENAFIL
     Indication: Pulmonary arterial hypertension
     Dosage: 75 MILLIGRAM
  15. SILDENAFIL [Concomitant]
     Active Substance: SILDENAFIL
     Dosage: 50 MILLIGRAM
  16. WARFARIN [Concomitant]
     Active Substance: WARFARIN
     Indication: Anticoagulant therapy
     Dosage: 1.5 MILLIGRAM
  17. WARFARIN [Concomitant]
     Active Substance: WARFARIN
     Dosage: 1.5 MILLIGRAM
  18. ASPIRIN [Concomitant]
     Active Substance: ASPIRIN
     Indication: Anticoagulant therapy
     Dosage: 100 MILLIGRAM
  19. ASPIRIN [Concomitant]
     Active Substance: ASPIRIN
     Dosage: 100 MILLIGRAM

REACTIONS (16)
  - Sudden death [Fatal]
  - Dyspnoea [Recovering/Resolving]
  - Right ventricular hypertrophy [Unknown]
  - QRS axis abnormal [Unknown]
  - H1N1 influenza [Unknown]
  - Sputum discoloured [Unknown]
  - Cardiomegaly [Unknown]
  - Tricuspid valve incompetence [Unknown]
  - Ejection fraction decreased [Unknown]
  - Pericardial effusion [Unknown]
  - Stroke volume decreased [Unknown]
  - Central venous pressure abnormal [Unknown]
  - Maternal exposure during pregnancy [Recovered/Resolved]
  - Headache [Recovering/Resolving]
  - Nausea [Recovering/Resolving]
  - Haemoglobin decreased [Recovering/Resolving]
